FAERS Safety Report 8515303-9 (Version None)
Quarter: 2012Q3

REPORT INFORMATION
  Report Type: 
  Country: None (occurrence: None)
  Receive Date: 20120717
  Receipt Date: 20120705
  Transmission Date: 20120928
  Serious: No
  Sender: FDA-Public Use
  Company Number: BR-ASTRAZENECA-2012SE45785

PATIENT
  Age: 54 Year
  Sex: Female
  Weight: 108.9 kg

DRUGS (6)
  1. SEROQUEL [Suspect]
     Indication: THERAPY REGIMEN CHANGED
     Route: 048
  2. SEROQUEL [Suspect]
     Indication: TIC
     Route: 048
  3. SEROQUEL [Suspect]
     Route: 048
  4. SEROQUEL [Suspect]
     Route: 048
  5. SEROQUEL [Suspect]
     Route: 048
  6. SEROQUEL [Suspect]
     Route: 048

REACTIONS (5)
  - INTERCEPTED DRUG PRESCRIBING ERROR [None]
  - THERAPEUTIC RESPONSE UNEXPECTED [None]
  - FATIGUE [None]
  - SOMNOLENCE [None]
  - OFF LABEL USE [None]
